FAERS Safety Report 11650276 (Version 2)
Quarter: 2015Q4

REPORT INFORMATION
  Report Type: Spontaneous
  Country: US (occurrence: None)
  Receive Date: 20151021
  Receipt Date: 20151109
  Transmission Date: 20160304
  Serious: Yes (Other)
  Sender: FDA-Public Use
  Company Number: US-MDT-ADR-2015-01993

PATIENT
  Age: 57 Year
  Sex: Male

DRUGS (2)
  1. COMPOUNDED BACLOFEN 1000 MCG/ML [Suspect]
     Active Substance: BACLOFEN
     Dosage: 149.9 MCG/DAY
  2. ORAL BACLOFEN TABS [Suspect]
     Active Substance: BACLOFEN
     Dosage: 10 MG TID FOR SPASMS

REACTIONS (3)
  - Muscle spasticity [None]
  - Seizure [None]
  - Therapy cessation [None]
